FAERS Safety Report 13621893 (Version 1)
Quarter: 2017Q2

REPORT INFORMATION
  Report Type: Spontaneous
  Country: US (occurrence: US)
  Receive Date: 20170607
  Receipt Date: 20170607
  Transmission Date: 20170830
  Serious: No
  Sender: FDA-Public Use
  Company Number: US-ROCHE-1791127

PATIENT
  Sex: Male

DRUGS (3)
  1. SYNTHROID [Concomitant]
     Active Substance: LEVOTHYROXINE SODIUM
     Route: 065
  2. XELODA [Suspect]
     Active Substance: CAPECITABINE
     Indication: RECTAL CANCER
     Dosage: 1800MG IN MORNING/1800MG IN EVENING.?DATE OF LAST DOSE PRIOR TO EVENT -16/MAR/2016
     Route: 065
     Dates: start: 20160208
  3. PRAVASTATIN. [Concomitant]
     Active Substance: PRAVASTATIN
     Route: 065

REACTIONS (2)
  - Contusion [Recovered/Resolved]
  - Dysuria [Unknown]
